FAERS Safety Report 17965543 (Version 2)
Quarter: 2020Q4

REPORT INFORMATION
  Report Type: Report from Study
  Country: US (occurrence: US)
  Receive Date: 20200630
  Receipt Date: 20201105
  Transmission Date: 20210113
  Serious: No
  Sender: FDA-Public Use
  Company Number: NVSC2020US180508

PATIENT
  Sex: Male
  Weight: 65.76 kg

DRUGS (3)
  1. TREPROSTINIL SODIUM [Suspect]
     Active Substance: TREPROSTINIL SODIUM
     Dosage: 90 NG (/KG/MIN)CONT
     Route: 042
     Dates: start: 20200507
  2. TREPROSTINIL SODIUM [Suspect]
     Active Substance: TREPROSTINIL SODIUM
     Indication: PULMONARY ARTERIAL HYPERTENSION
     Dosage: 84 NG/KG/MIN, CONT
     Route: 041
     Dates: start: 20200507
  3. LETAIRIS [Suspect]
     Active Substance: AMBRISENTAN
     Indication: PRODUCT USED FOR UNKNOWN INDICATION
     Dosage: UNK
     Route: 065

REACTIONS (6)
  - Infusion site irritation [Unknown]
  - Infusion site erythema [Unknown]
  - Rash [Unknown]
  - Pain [Unknown]
  - Papule [Unknown]
  - Infusion site haemorrhage [Unknown]
